FAERS Safety Report 7713211-4 (Version None)
Quarter: 2011Q3

REPORT INFORMATION
  Report Type: 
  Country: None (occurrence: None)
  Receive Date: 20110826
  Receipt Date: 20100823
  Transmission Date: 20111222
  Serious: No
  Sender: FDA-Public Use
  Company Number: US-BAYER-201031435NA

PATIENT
  Age: 21 Year
  Sex: Female

DRUGS (1)
  1. CIPROFLOXACIN [Suspect]
     Indication: KIDNEY INFECTION
     Dosage: 500 MG, BID
     Route: 048
     Dates: start: 20100208

REACTIONS (4)
  - BACK PAIN [None]
  - PYREXIA [None]
  - HEADACHE [None]
  - VOMITING [None]
